FAERS Safety Report 21792315 (Version 1)
Quarter: 2022Q4

REPORT INFORMATION
  Report Type: Spontaneous
  Country: US (occurrence: US)
  Receive Date: 20221229
  Receipt Date: 20221229
  Transmission Date: 20230113
  Serious: No
  Sender: FDA-Public Use
  Company Number: US-JNJFOC-20221256694

PATIENT
  Age: 28 Year
  Sex: Female
  Weight: 64.4 kg

DRUGS (1)
  1. ULTRAM [Suspect]
     Active Substance: TRAMADOL HYDROCHLORIDE
     Indication: Headache
     Route: 065

REACTIONS (1)
  - Therapy non-responder [Recovered/Resolved]
